FAERS Safety Report 21794004 (Version 1)
Quarter: 2022Q4

REPORT INFORMATION
  Report Type: Spontaneous
  Country: IT (occurrence: IT)
  Receive Date: 20221229
  Receipt Date: 20221229
  Transmission Date: 20230113
  Serious: Yes (Life-Threatening)
  Sender: FDA-Public Use
  Company Number: IT-BAUSCHBL-2022BNL003110

PATIENT
  Age: 35 Year
  Sex: Female

DRUGS (12)
  1. GENTAMICIN [Suspect]
     Active Substance: GENTAMICIN
     Indication: Evidence based treatment
     Dosage: HIGH-DOSE EXTENDED INTERVAL GENTAMICIN
     Route: 065
  2. GENTAMICIN [Suspect]
     Active Substance: GENTAMICIN
     Indication: Pneumonia klebsiella
  3. MEROPENEM\VABORBACTAM [Suspect]
     Active Substance: MEROPENEM\VABORBACTAM
     Indication: Evidence based treatment
     Route: 065
  4. MEROPENEM\VABORBACTAM [Suspect]
     Active Substance: MEROPENEM\VABORBACTAM
     Indication: Pneumonia klebsiella
     Route: 065
  5. MEROPENEM\VABORBACTAM [Suspect]
     Active Substance: MEROPENEM\VABORBACTAM
     Dosage: BASED ON 3-H INFUSION
     Route: 065
  6. TIGECYCLINE [Concomitant]
     Active Substance: TIGECYCLINE
     Indication: Evidence based treatment
     Route: 065
  7. TIGECYCLINE [Concomitant]
     Active Substance: TIGECYCLINE
     Indication: Pneumonia klebsiella
     Route: 065
  8. TIGECYCLINE [Concomitant]
     Active Substance: TIGECYCLINE
     Dosage: 4-H INFUSION
     Route: 065
  9. AVIBACTAM SODIUM\CEFTAZIDIME [Concomitant]
     Active Substance: AVIBACTAM SODIUM\CEFTAZIDIME
     Indication: Pneumonia klebsiella
  10. FOSFOMYCIN [Concomitant]
     Active Substance: FOSFOMYCIN
     Indication: Pneumonia klebsiella
  11. IMIPENEM [Concomitant]
     Active Substance: IMIPENEM
     Indication: Pneumonia klebsiella
  12. MEROPENEM [Concomitant]
     Active Substance: MEROPENEM
     Indication: Pneumonia klebsiella

REACTIONS (1)
  - Therapy non-responder [Unknown]
